FAERS Safety Report 11229374 (Version 2)
Quarter: 2015Q3

REPORT INFORMATION
  Report Type: Report from Study
  Country: BR (occurrence: BR)
  Receive Date: 20150630
  Receipt Date: 20150928
  Transmission Date: 20151125
  Serious: Yes (Other)
  Sender: FDA-Public Use
  Company Number: PHHY2015BR077903

PATIENT
  Sex: Female
  Weight: 65 kg

DRUGS (1)
  1. SANDOSTATIN LAR DEPOT [Suspect]
     Active Substance: OCTREOTIDE ACETATE
     Indication: CARCINOID TUMOUR PULMONARY
     Dosage: 1 DF, QMO
     Route: 065

REACTIONS (3)
  - Inappropriate schedule of drug administration [Unknown]
  - Ovarian cyst [Not Recovered/Not Resolved]
  - Uterine neoplasm [Unknown]
